FAERS Safety Report 4945417-1 (Version None)
Quarter: 2006Q1

REPORT INFORMATION
  Report Type: 
  Country: None (occurrence: None)
  Receive Date: 20060316
  Receipt Date: 20040414
  Transmission Date: 20060701
  Serious: Yes (Other)
  Sender: FDA-Public Use
  Company Number: US-GLAXOSMITHKLINE-A0507172A

PATIENT
  Age: 71 Year
  Sex: Female

DRUGS (3)
  1. ADVAIR DISKUS 100/50 [Suspect]
     Indication: ASTHMA
     Dosage: 1PUFF TWICE PER DAY
     Route: 055
     Dates: end: 20060101
  2. ALBUTEROL [Concomitant]
  3. ATENOLOL [Concomitant]

REACTIONS (2)
  - BLINDNESS [None]
  - VISUAL DISTURBANCE [None]
